FAERS Safety Report 7040549-9 (Version None)
Quarter: 2010Q4

REPORT INFORMATION
  Report Type: 
  Country: None (occurrence: None)
  Receive Date: 20101006
  Receipt Date: 20100928
  Transmission Date: 20110411
  Serious: Yes (Hospitalization)
  Sender: FDA-Public Use
  Company Number: 2010PL000149

PATIENT
  Age: 62 Year
  Sex: Female

DRUGS (3)
  1. MERCAPTOPURINE [Suspect]
     Indication: CROHN'S DISEASE
     Dosage: 25 MG;BIW
     Dates: start: 20020101, end: 20090401
  2. ALLOPURINOL [Concomitant]
  3. MESALAMINE [Concomitant]

REACTIONS (6)
  - ACUTE MYELOID LEUKAEMIA [None]
  - ANAEMIA MACROCYTIC [None]
  - COLONIC STENOSIS [None]
  - IDIOSYNCRATIC DRUG REACTION [None]
  - INCREASED TENDENCY TO BRUISE [None]
  - VITAMIN B12 DEFICIENCY [None]
